FAERS Safety Report 10605671 (Version 1)
Quarter: 2014Q4

REPORT INFORMATION
  Report Type: Other
  Country: JP (occurrence: JP)
  Receive Date: 20141125
  Receipt Date: 20141125
  Transmission Date: 20150529
  Serious: Yes (Other)
  Sender: FDA-Public Use
  Company Number: JP-TAKEDA-2014TJP015870

PATIENT
  Age: 63 Year
  Sex: Female

DRUGS (1)
  1. LAMPION PACK (LANSOPRAZOLE, AMOXICILLIN, METRONIDAZOLE) [Suspect]
     Active Substance: AMOXICILLIN\LANSOPRAZOLE\METRONIDAZOLE
     Indication: PRODUCT USED FOR UNKNOWN INDICATION
     Dosage: UNK
     Route: 048
     Dates: start: 201404, end: 201404

REACTIONS (1)
  - Enterocolitis haemorrhagic [Unknown]
